FAERS Safety Report 4577460-9 (Version None)
Quarter: 2005Q1

REPORT INFORMATION
  Report Type: 
  Country: None (occurrence: None)
  Receive Date: 20050208
  Receipt Date: 20050128
  Transmission Date: 20050727
  Serious: Yes (Other)
  Sender: FDA-Public Use
  Company Number: 2005022659

PATIENT
  Age: 76 Year
  Sex: Female
  Weight: 44 kg

DRUGS (1)
  1. DALTEPARIN (DALTEPARIN) [Suspect]
     Indication: THROMBOSIS PROPHYLAXIS
     Dosage: 2500 I.U. (2500 I.U., DAILY), SUBCUTANEOUS
     Route: 058
     Dates: start: 20050126

REACTIONS (3)
  - DEVICE FAILURE [None]
  - FOREIGN BODY TRAUMA [None]
  - MEDICAL DEVICE COMPLICATION [None]
